FAERS Safety Report 19522113 (Version 1)
Quarter: 2021Q3

REPORT INFORMATION
  Report Type: Spontaneous
  Country: PH (occurrence: PH)
  Receive Date: 20210713
  Receipt Date: 20210713
  Transmission Date: 20211014
  Serious: Yes (Hospitalization)
  Sender: FDA-Public Use
  Company Number: PH-TERSERA THERAPEUTICS LLC-2021TRS003273

PATIENT

DRUGS (1)
  1. ZOLADEX [Suspect]
     Active Substance: GOSERELIN ACETATE
     Indication: PROSTATE CANCER
     Dosage: 3.6MG UNKNOWN
     Route: 058
     Dates: start: 202105

REACTIONS (5)
  - Pneumonia [Unknown]
  - Cerebrovascular accident [Unknown]
  - Oxygen saturation decreased [Unknown]
  - Full blood count abnormal [Unknown]
  - Blood sodium decreased [Unknown]
